FAERS Safety Report 7594153-4 (Version None)
Quarter: 2011Q3

REPORT INFORMATION
  Report Type: 
  Country: None (occurrence: None)
  Receive Date: 20110706
  Receipt Date: 20110629
  Transmission Date: 20111222
  Serious: Yes (Hospitalization)
  Sender: FDA-Public Use
  Company Number: US-MILLENNIUM PHARMACEUTICALS, INC.-2011-02741

PATIENT
  Sex: Male
  Weight: 68.481 kg

DRUGS (3)
  1. VELCADE [Suspect]
     Indication: KIDNEY TRANSPLANT REJECTION
     Dosage: UNK
     Dates: start: 20110618, end: 20110618
  2. THYMOGLOBULIN [Suspect]
     Indication: KIDNEY TRANSPLANT REJECTION
     Dosage: UNK
     Dates: start: 20110509, end: 20110522
  3. RITUXIMAB [Suspect]
     Indication: KIDNEY TRANSPLANT REJECTION
     Dosage: UNK
     Dates: start: 20110510, end: 20110510

REACTIONS (2)
  - LEUKOCYTOSIS [None]
  - PYREXIA [None]
